FAERS Safety Report 5109634-2 (Version None)
Quarter: 2006Q3

REPORT INFORMATION
  Report Type: 
  Country: None (occurrence: None)
  Receive Date: 20060731
  Receipt Date: 20060512
  Transmission Date: 20061208
  Serious: No
  Sender: FDA-Public Use
  Company Number: 2006PV013720

PATIENT
  Age: 67 Year
  Sex: Female

DRUGS (2)
  1. BYETTA [Suspect]
     Indication: DIABETES MELLITUS
     Dosage: 5 MCG; BIDL SC
     Route: 058
     Dates: start: 20060401
  2. ACTOS [Concomitant]

REACTIONS (4)
  - ASTHENIA [None]
  - COLD SWEAT [None]
  - DIARRHOEA [None]
  - VOMITING [None]
